FAERS Safety Report 24078114 (Version 1)
Quarter: 2024Q3

REPORT INFORMATION
  Report Type: Report from Study
  Country: US (occurrence: US)
  Receive Date: 20240711
  Receipt Date: 20240711
  Transmission Date: 20241017
  Serious: Yes (Other)
  Sender: TEVA
  Company Number: US-TEVA-VS-3175495

PATIENT
  Age: 68 Year
  Sex: Female

DRUGS (1)
  1. AUSTEDO XR [Suspect]
     Active Substance: DEUTETRABENAZINE
     Indication: Huntington^s disease
     Dosage: 12MG(6MG+6MG)
     Route: 065
     Dates: start: 20240301, end: 20240506

REACTIONS (3)
  - Hallucination [Unknown]
  - Adverse event [Unknown]
  - Nightmare [Unknown]

NARRATIVE: CASE EVENT DATE: 20240101
